FAERS Safety Report 5155341-X (Version None)
Quarter: 2006Q4

REPORT INFORMATION
  Report Type: 
  Country: None (occurrence: None)
  Receive Date: 20061114
  Receipt Date: 20061101
  Transmission Date: 20070319
  Serious: Yes (Death)
  Sender: FDA-Public Use
  Company Number: HQWYE386203NOV06

PATIENT
  Age: 86 Year

DRUGS (3)
  1. CORDARONE [Suspect]
  2. ATENOLOL [Suspect]
  3. DIGOXIN [Suspect]

REACTIONS (1)
  - MEDICATION ERROR [None]
